FAERS Safety Report 4998224-8 (Version None)
Quarter: 2006Q2

REPORT INFORMATION
  Report Type: 
  Country: None (occurrence: None)
  Receive Date: 20060508
  Receipt Date: 20060425
  Transmission Date: 20061013
  Serious: Yes (Hospitalization)
  Sender: FDA-Public Use
  Company Number: 2006056772

PATIENT
  Age: 77 Year
  Sex: Female

DRUGS (2)
  1. BEXTRA [Suspect]
     Indication: PAIN
     Dosage: (10 MG), ORAL
     Route: 048
  2. METFORMIN [Concomitant]

REACTIONS (7)
  - CHAPPED LIPS [None]
  - DERMATITIS ALLERGIC [None]
  - HYPERSENSITIVITY [None]
  - LEUKOCYTOSIS [None]
  - PAIN [None]
  - PYREXIA [None]
  - SKIN DISCOLOURATION [None]
